FAERS Safety Report 17544293 (Version 1)
Quarter: 2020Q1

REPORT INFORMATION
  Report Type: Spontaneous
  Country: US (occurrence: US)
  Receive Date: 20200316
  Receipt Date: 20200316
  Transmission Date: 20200409
  Serious: No
  Sender: FDA-Public Use
  Company Number: US-MYLANLABS-2020M1024903

PATIENT
  Sex: Female
  Weight: 64 kg

DRUGS (4)
  1. REVLIMID [Concomitant]
     Active Substance: LENALIDOMIDE
     Indication: RELAPSING-REMITTING MULTIPLE SCLEROSIS
  2. REVLIMID [Concomitant]
     Active Substance: LENALIDOMIDE
     Indication: PLASMA CELL MYELOMA
     Dosage: UNK
  3. GLATIRAMER ACETATE INJECTION [Suspect]
     Active Substance: GLATIRAMER ACETATE
     Indication: RELAPSING-REMITTING MULTIPLE SCLEROSIS
     Dosage: THREE TIMES WEEKLY
     Route: 058
  4. REVLIMID [Concomitant]
     Active Substance: LENALIDOMIDE
     Indication: MULTIPLE SCLEROSIS

REACTIONS (2)
  - Injection site pain [Unknown]
  - Injection site mass [Unknown]
